FAERS Safety Report 6300410-1 (Version None)
Quarter: 2009Q3

REPORT INFORMATION
  Report Type: 
  Country: None (occurrence: None)
  Receive Date: 20090806
  Receipt Date: 20080916
  Transmission Date: 20100115
  Serious: No
  Sender: FDA-Public Use
  Company Number: US-ABBOTT-08P-163-0476629-00

PATIENT
  Sex: Male
  Weight: 61.29 kg

DRUGS (1)
  1. DEPAKOTE ER [Suspect]
     Indication: CONVULSION
     Route: 058
     Dates: start: 20050301

REACTIONS (3)
  - DRUG LEVEL CHANGED [None]
  - FEELING ABNORMAL [None]
  - LIBIDO DECREASED [None]
